FAERS Safety Report 25415919 (Version 1)
Quarter: 2025Q2

REPORT INFORMATION
  Report Type: Spontaneous
  Country: US (occurrence: US)
  Receive Date: 20250610
  Receipt Date: 20250610
  Transmission Date: 20250717
  Serious: Yes (Life-Threatening, Hospitalization, Other)
  Sender: MARKSANS PHARMA LIMITED
  Company Number: US-MARKSANS PHARMA LIMITED-MPL202500058

PATIENT

DRUGS (1)
  1. METFORMIN HYDROCHLORIDE [Suspect]
     Active Substance: METFORMIN HYDROCHLORIDE
     Indication: Suicidal ideation
     Route: 048

REACTIONS (11)
  - Myocardial injury [Recovered/Resolved]
  - Renal impairment [Recovered/Resolved]
  - Sensory disturbance [Unknown]
  - Abnormal behaviour [Unknown]
  - Metabolic acidosis [Recovered/Resolved]
  - Lactic acidosis [Recovered/Resolved]
  - Abdominal pain [Unknown]
  - Somnolence [Unknown]
  - Vomiting [Unknown]
  - Hypoglycaemia [Recovered/Resolved]
  - Intentional overdose [Unknown]
